FAERS Safety Report 7325802-3 (Version None)
Quarter: 2011Q1

REPORT INFORMATION
  Report Type: 
  Country: None (occurrence: None)
  Receive Date: 20110302
  Receipt Date: 20110224
  Transmission Date: 20110831
  Serious: Yes (Other)
  Sender: FDA-Public Use
  Company Number: DE-GENZYME-FLUD-1000759

PATIENT
  Age: 62 Year
  Sex: Male

DRUGS (4)
  1. PENTOSTATIN [Concomitant]
     Indication: ASTHENIA
  2. PENTOSTATIN [Concomitant]
     Indication: C-REACTIVE PROTEIN INCREASED
  3. FLUDARA [Suspect]
     Indication: STEM CELL TRANSPLANT
     Dosage: 30 MG/M2, ONCE X3
     Route: 065
  4. PENTOSTATIN [Concomitant]
     Indication: CHIMERISM
     Dosage: 2 MG, QD
     Route: 065

REACTIONS (1)
  - GRAFT VERSUS HOST DISEASE [None]
